FAERS Safety Report 9166759 (Version 4)
Quarter: 2014Q2

REPORT INFORMATION
  Report Type: Other
  Country: FR (occurrence: FR)
  Receive Date: 20121128
  Receipt Date: 20140403
  Transmission Date: 20141212
  Serious: Yes (Hospitalization, Other)
  Sender: FDA-Public Use
  Company Number: FR-RB-047101-12

PATIENT
  Sex: Male

DRUGS (5)
  1. SUBUTEX [Suspect]
     Indication: PRODUCT USED FOR UNKNOWN INDICATION
     Dosage: DOSING DETAILS UNKNOWN
     Route: 045
     Dates: start: 2002
  2. SUBUTEX [Suspect]
     Route: 045
     Dates: start: 2010, end: 20120526
  3. ALCOHOL [Suspect]
     Indication: PRODUCT USED FOR UNKNOWN INDICATION
     Dosage: OCCASIONALLY
     Route: 065
  4. CANNABIS [Suspect]
     Indication: PRODUCT USED FOR UNKNOWN INDICATION
     Dosage: 4-5 JOINTS A WEEK
     Route: 055
  5. NICOTINE [Concomitant]
     Indication: PRODUCT USED FOR UNKNOWN INDICATION
     Dosage: 10/DAY
     Route: 055

REACTIONS (4)
  - Intentional product misuse [Recovered/Resolved]
  - Drug abuse [Unknown]
  - Renal failure acute [Recovered/Resolved]
  - Hepatitis [Recovered/Resolved]
